FAERS Safety Report 24924704 (Version 1)
Quarter: 2025Q1

REPORT INFORMATION
  Report Type: Report from Study
  Country: CA (occurrence: CA)
  Receive Date: 20250204
  Receipt Date: 20250204
  Transmission Date: 20250409
  Serious: No
  Sender: EXELIXIS
  Company Number: CA-IPSEN Group, Research and Development-2024-04842

PATIENT
  Sex: Male

DRUGS (17)
  1. CABOMETYX [Suspect]
     Active Substance: CABOZANTINIB S-MALATE
     Indication: Renal cell carcinoma
     Dosage: 40 MG, QD
     Route: 048
     Dates: start: 20231204, end: 20240117
  2. ALBUTEROL [Concomitant]
     Active Substance: ALBUTEROL
  3. HYDROXYZINE [Concomitant]
     Active Substance: HYDROXYZINE HYDROCHLORIDE
  4. PREGABALIN [Concomitant]
     Active Substance: PREGABALIN
  5. DAPAGLIFLOZIN [Concomitant]
     Active Substance: DAPAGLIFLOZIN
  6. INSULIN ASPART [Concomitant]
     Active Substance: INSULIN ASPART
  7. TRESIBA [Concomitant]
     Active Substance: INSULIN DEGLUDEC
  8. TAMSULOSIN [Concomitant]
     Active Substance: TAMSULOSIN
  9. INDAPAMIDE [Concomitant]
     Active Substance: INDAPAMIDE
  10. MUCINEX [Concomitant]
     Active Substance: GUAIFENESIN
  11. OZEMPIC [Concomitant]
     Active Substance: SEMAGLUTIDE
  12. EZETIMIBE [Concomitant]
     Active Substance: EZETIMIBE
  13. ATORVASTATIN [Concomitant]
     Active Substance: ATORVASTATIN
  14. AMLODIPINE [Concomitant]
     Active Substance: AMLODIPINE BESYLATE
  15. DEXILANT [Concomitant]
     Active Substance: DEXLANSOPRAZOLE
  16. GLYCOPYRROLATE [Concomitant]
     Active Substance: GLYCOPYRROLATE
  17. ENALAPRIL [Concomitant]
     Active Substance: ENALAPRIL

REACTIONS (1)
  - Adverse drug reaction [Unknown]
